FAERS Safety Report 5614675-2 (Version None)
Quarter: 2008Q1

REPORT INFORMATION
  Report Type: 
  Country: None (occurrence: None)
  Receive Date: 20080131
  Receipt Date: 20080124
  Transmission Date: 20080703
  Serious: Yes (Hospitalization)
  Sender: FDA-Public Use
  Company Number: 2008-00460

PATIENT
  Age: 57 Year
  Sex: Male

DRUGS (2)
  1. ATENOLOL [Suspect]
     Indication: HYPERTENSION
     Dosage: ORAL
     Route: 048
  2. OVER-THE-COUNTER HERBAL FORMULATIONS() [Suspect]
     Indication: DRUG USE FOR UNKNOWN INDICATION
     Dosage: ORAL
     Route: 048

REACTIONS (4)
  - DRUG INTERACTION [None]
  - GRANULOMATOUS LIVER DISEASE [None]
  - HEPATOTOXICITY [None]
  - LIVER DISORDER [None]
